FAERS Safety Report 8099402-4 (Version None)
Quarter: 2012Q1

REPORT INFORMATION
  Report Type: 
  Country: None (occurrence: None)
  Receive Date: 20120129
  Receipt Date: 20111004
  Transmission Date: 20120608
  Serious: No
  Sender: FDA-Public Use
  Company Number: US-ABBOTT-11P-163-0861587-00

PATIENT
  Sex: Male
  Weight: 108.51 kg

DRUGS (4)
  1. HUMIRA [Suspect]
     Indication: RHEUMATOID ARTHRITIS
     Dates: start: 20100901, end: 20110901
  2. PLAQUENIL [Concomitant]
     Indication: RHEUMATOID ARTHRITIS
     Dates: start: 20110101, end: 20110101
  3. HUMIRA [Suspect]
     Dates: start: 20111004
  4. METHOTREXATE [Concomitant]
     Indication: RHEUMATOID ARTHRITIS
     Dates: start: 20110101, end: 20110101

REACTIONS (3)
  - RETCHING [None]
  - PNEUMONIA [None]
  - DRUG DOSE OMISSION [None]
